FAERS Safety Report 9104293 (Version 1)
Quarter: 2013Q1

REPORT INFORMATION
  Report Type: Spontaneous
  Country: BR (occurrence: BR)
  Receive Date: 20130219
  Receipt Date: 20130219
  Transmission Date: 20140127
  Serious: Yes (Other)
  Sender: FDA-Public Use
  Company Number: PHHY2012BR089623

PATIENT
  Sex: Female

DRUGS (7)
  1. SANDOSTATIN LAR [Suspect]
     Indication: ACROMEGALY
     Dosage: 20 MG, QMO 20 MG, (1 INJECTION OF 20MG)
     Route: 030
  2. CORTICORTEN [Concomitant]
     Dosage: 5 MG, DAILY
     Route: 048
  3. PURAN T4 [Concomitant]
     Indication: THYROID DISORDER
     Dosage: 75 UG, DAILY
     Route: 048
  4. METFORMIN [Concomitant]
     Indication: DIABETES MELLITUS
     Dosage: 100 MG, DAILY
     Route: 048
  5. FERROUS SULPHATE [Concomitant]
     Indication: ANAEMIA
     Dosage: 300 MG, DAILY
     Route: 048
     Dates: start: 2003
  6. RANITIDINE [Concomitant]
     Indication: ABDOMINAL PAIN UPPER
     Dosage: 150 MG, DAILY
     Route: 048
     Dates: start: 201208
  7. NAPROXENO GENERIS [Concomitant]
     Indication: HEADACHE
     Dosage: 1000 MG, DAILY
     Route: 048

REACTIONS (9)
  - Diabetes mellitus [Unknown]
  - Blood cholesterol increased [Unknown]
  - Chest discomfort [Not Recovered/Not Resolved]
  - Hypoaesthesia [Not Recovered/Not Resolved]
  - Dyspnoea [Not Recovered/Not Resolved]
  - Headache [Not Recovered/Not Resolved]
  - Dizziness [Not Recovered/Not Resolved]
  - Cardiac disorder [Recovering/Resolving]
  - Pain in extremity [Recovering/Resolving]
